FAERS Safety Report 4517263-4 (Version None)
Quarter: 2004Q4

REPORT INFORMATION
  Report Type: 
  Country: None (occurrence: None)
  Receive Date: 20041005
  Receipt Date: 20040820
  Transmission Date: 20050328
  Serious: Yes (Other)
  Sender: FDA-Public Use
  Company Number: 002420

PATIENT
  Age: 41 Year
  Sex: Male
  Weight: 77.1 kg

DRUGS (1)
  1. ETHAMBUTOL HCL [Suspect]
     Indication: MYCOBACTERIUM MARINUM INFECTION
     Dosage: 400.00 MG, BID, ORAL
     Route: 048
     Dates: start: 20040201, end: 20040601

REACTIONS (2)
  - BLINDNESS [None]
  - VISION BLURRED [None]
